FAERS Safety Report 15405919 (Version 1)
Quarter: 2018Q3

REPORT INFORMATION
  Report Type: Report from Study
  Country: DE (occurrence: DE)
  Receive Date: 20180920
  Receipt Date: 20180920
  Transmission Date: 20181010
  Serious: Yes (Other)
  Sender: FDA-Public Use
  Company Number: DE-SUN PHARMACEUTICAL INDUSTRIES LTD-2018RR-184864

PATIENT
  Age: 35 Year
  Sex: Female

DRUGS (3)
  1. CHOLECALCIFEROL [Suspect]
     Active Substance: CHOLECALCIFEROL
     Indication: PRODUCT USED FOR UNKNOWN INDICATION
     Dosage: BETWEEN GESTATIONAL WEEKS 0?24
     Route: 065
  2. METOPROLOL. [Suspect]
     Active Substance: METOPROLOL
     Indication: PRODUCT USED FOR UNKNOWN INDICATION
     Dosage: BETWEEN GESTATIONAL WEEKS 0?24
     Route: 065
  3. CANDESARTAN. [Suspect]
     Active Substance: CANDESARTAN
     Indication: HYPERTENSION
     Dosage: 16 MG, BETWEEN GESTATIONAL WEEKS 0?5
     Route: 065

REACTIONS (2)
  - Contraindicated product administered [Unknown]
  - Exposure during pregnancy [Unknown]
